FAERS Safety Report 17434986 (Version 1)
Quarter: 2020Q1

REPORT INFORMATION
  Report Type: Spontaneous
  Country: US (occurrence: US)
  Receive Date: 20200219
  Receipt Date: 20200219
  Transmission Date: 20200409
  Serious: No
  Sender: FDA-Public Use
  Company Number: US-HORIZON-KRY-0203-2020

PATIENT
  Age: 33 Year
  Sex: Female

DRUGS (1)
  1. KRYSTEXXA [Suspect]
     Active Substance: PEGLOTICASE
     Indication: PRODUCT USED FOR UNKNOWN INDICATION

REACTIONS (4)
  - Urticaria [Unknown]
  - Blood uric acid increased [Unknown]
  - Blood uric acid increased [Unknown]
  - Urticaria [Unknown]

NARRATIVE: CASE EVENT DATE: 2017
